FAERS Safety Report 14774771 (Version 1)
Quarter: 2018Q2

REPORT INFORMATION
  Report Type: Spontaneous
  Country: US (occurrence: US)
  Receive Date: 20180418
  Receipt Date: 20180418
  Transmission Date: 20180711
  Serious: Yes (Other)
  Sender: FDA-Public Use
  Company Number: US-ASTELLAS-2017US039194

PATIENT
  Age: 58 Year
  Sex: Female

DRUGS (2)
  1. LEXISCAN [Suspect]
     Active Substance: REGADENOSON
     Indication: HYPERCHOLESTEROLAEMIA
  2. LEXISCAN [Suspect]
     Active Substance: REGADENOSON
     Indication: CHEST PAIN
     Dosage: 0.4 MG, TOTAL DOSE (WITHIN 10 SECONDS)
     Route: 042
     Dates: start: 20170926, end: 20170926

REACTIONS (3)
  - Abdominal pain upper [Recovered/Resolved]
  - Wrong technique in product usage process [Unknown]
  - Blood pressure decreased [Recovered/Resolved]

NARRATIVE: CASE EVENT DATE: 20170926
